FAERS Safety Report 20082917 (Version 1)
Quarter: 2021Q4

REPORT INFORMATION
  Report Type: Report from Study
  Country: US (occurrence: US)
  Receive Date: 20211117
  Receipt Date: 20211117
  Transmission Date: 20220303
  Serious: No
  Sender: FDA-Public Use
  Company Number: US-KYOWAKIRIN-2021BKK019122

PATIENT

DRUGS (2)
  1. CRYSVITA [Suspect]
     Active Substance: BUROSUMAB-TWZA
     Indication: Hereditary hypophosphataemic rickets
     Dosage: STRENGTH 10 AND 30 MG/ML COMBINED TO ACHIEVE DOSE OF 70 MG, ONCE EVERY FOUR WEEKS
     Route: 058
     Dates: start: 20180712
  2. CRYSVITA [Suspect]
     Active Substance: BUROSUMAB-TWZA
     Indication: Hereditary hypophosphataemic rickets
     Dosage: STRENGTH 10 AND 30 MG/ML COMBINED TO ACHIEVE DOSE OF 70 MG, ONCE EVERY FOUR WEEKS
     Route: 058
     Dates: start: 20180712

REACTIONS (2)
  - Abdominal pain [Unknown]
  - Abdominal pain upper [Unknown]

NARRATIVE: CASE EVENT DATE: 20210101
